FAERS Safety Report 9797784 (Version 1)
Quarter: 2014Q1

REPORT INFORMATION
  Report Type: Spontaneous
  Country: US (occurrence: None)
  Receive Date: 20140102
  Receipt Date: 20140102
  Transmission Date: 20141002
  Serious: No
  Sender: FDA-Public Use
  Company Number: None

PATIENT
  Age: 54 Year
  Sex: Female
  Weight: 68.04 kg

DRUGS (2)
  1. LEVOFLOXACIN [Suspect]
     Indication: LITHOTRIPSY
     Dosage: ADMINISTERED BY NURSE IN HOSP
     Route: 042
     Dates: start: 20131122, end: 20131122
  2. GENTAMICIN [Suspect]
     Dosage: ADMINISTERED BY NURSE IN HOSP
     Route: 042
     Dates: start: 20131122, end: 20131122

REACTIONS (7)
  - Urticaria [None]
  - Tinnitus [None]
  - Dry eye [None]
  - Musculoskeletal stiffness [None]
  - Myalgia [None]
  - Arthralgia [None]
  - Hypoaesthesia [None]
